FAERS Safety Report 8987579 (Version 3)
Quarter: 2013Q4

REPORT INFORMATION
  Report Type: Spontaneous
  Country: US (occurrence: US)
  Receive Date: 20121227
  Receipt Date: 20131121
  Transmission Date: 20140711
  Serious: Yes (Other)
  Sender: FDA-Public Use
  Company Number: US-BAYER-2012-134488

PATIENT
  Age: 77 Year
  Sex: Female
  Weight: 73 kg

DRUGS (5)
  1. BAYER ADVANCED ASPIRIN EXTRA STRENGTH [Suspect]
     Indication: ANALGESIC THERAPY
     Dosage: ONE TABLET BY MOUTH
     Dates: start: 201211, end: 201211
  2. BAYER ADVANCED ASPIRIN EXTRA STRENGTH [Suspect]
     Indication: ANALGESIC THERAPY
     Dosage: 1 DF, QD
     Route: 048
     Dates: start: 201211, end: 201211
  3. BAYER ADVANCED ASPIRIN EXTRA STRENGTH [Suspect]
     Indication: ANALGESIC THERAPY
     Dosage: UNK
     Dates: start: 201212
  4. VYTORIN [Concomitant]
  5. VERAPAMIL [Concomitant]

REACTIONS (18)
  - Aphagia [None]
  - Swollen tongue [Recovered/Resolved]
  - Hypoaesthesia oral [Recovered/Resolved]
  - Hypoaesthesia oral [Recovered/Resolved]
  - Weight decreased [None]
  - Discomfort [Not Recovered/Not Resolved]
  - Pain [Not Recovered/Not Resolved]
  - Dysgeusia [Not Recovered/Not Resolved]
  - Tooth discolouration [Not Recovered/Not Resolved]
  - Gingival disorder [Not Recovered/Not Resolved]
  - Tongue disorder [Not Recovered/Not Resolved]
  - Toothache [Not Recovered/Not Resolved]
  - Wrong technique in drug usage process [None]
  - Feeling abnormal [None]
  - Nausea [Not Recovered/Not Resolved]
  - Gingival pain [Not Recovered/Not Resolved]
  - Product odour abnormal [None]
  - Dysgeusia [None]
